FAERS Safety Report 22530283 (Version 1)
Quarter: 2023Q2

REPORT INFORMATION
  Report Type: Report from Study
  Country: CA (occurrence: CA)
  Receive Date: 20230607
  Receipt Date: 20230607
  Transmission Date: 20230722
  Serious: Yes (Other)
  Sender: FDA-Public Use
  Company Number: CA-002147023-NVSC2023CA128826

PATIENT
  Age: 81 Year
  Sex: Male

DRUGS (1)
  1. ERELZI [Suspect]
     Active Substance: ETANERCEPT-SZZS
     Indication: Rheumatoid arthritis
     Dosage: 50 MG (PRE-FILLED PEN)
     Route: 058
     Dates: start: 20230206

REACTIONS (6)
  - Haemorrhage [Unknown]
  - Glaucoma [Unknown]
  - Arthralgia [Unknown]
  - Neck pain [Unknown]
  - Dizziness [Unknown]
  - Ecchymosis [Unknown]
